FAERS Safety Report 7534014-X (Version None)
Quarter: 2011Q2

REPORT INFORMATION
  Report Type: 
  Country: None (occurrence: None)
  Receive Date: 20110608
  Receipt Date: 20060905
  Transmission Date: 20111010
  Serious: Yes (Death)
  Sender: FDA-Public Use
  Company Number: PHEH2006US10409

PATIENT
  Sex: Male
  Weight: 105.22 kg

DRUGS (2)
  1. CLOZAPINE [Suspect]
     Indication: SCHIZOPHRENIA
     Dosage: UNK, UNK
     Route: 048
  2. DEPAKOTE [Concomitant]
     Indication: SCHIZOPHRENIA
     Dosage: 1000 MG, QD
     Route: 048

REACTIONS (2)
  - HEAT STROKE [None]
  - HEAT EXHAUSTION [None]
